FAERS Safety Report 6893807-2 (Version None)
Quarter: 2010Q3

REPORT INFORMATION
  Report Type: 
  Country: None (occurrence: None)
  Receive Date: 20100802
  Receipt Date: 20100727
  Transmission Date: 20110219
  Serious: No
  Sender: FDA-Public Use
  Company Number: US-BIOGENIDEC-2010BI008347

PATIENT
  Age: 40 Year
  Sex: Female
  Weight: 61 kg

DRUGS (2)
  1. TYSABRI [Suspect]
     Indication: MULTIPLE SCLEROSIS
     Route: 042
     Dates: start: 20080828, end: 20100212
  2. TYSABRI [Suspect]
     Dates: start: 20100101

REACTIONS (6)
  - CSF PROTEIN INCREASED [None]
  - DRUG INEFFECTIVE [None]
  - MOOD ALTERED [None]
  - MULTIPLE SCLEROSIS [None]
  - MULTIPLE SCLEROSIS RELAPSE [None]
  - POOR VENOUS ACCESS [None]
